FAERS Safety Report 10692956 (Version 1)
Quarter: 2015Q1

REPORT INFORMATION
  Report Type: Spontaneous
  Country: US (occurrence: None)
  Receive Date: 20150105
  Receipt Date: 20150105
  Transmission Date: 20150720
  Serious: Yes (Other)
  Sender: FDA-Public Use
  Company Number: None

PATIENT
  Age: 62 Year
  Sex: Male
  Weight: 79.38 kg

DRUGS (1)
  1. PROAIR HFA [Suspect]
     Active Substance: ALBUTEROL SULFATE
     Indication: DYSPNOEA
     Dosage: ONE OR TWO INHALATIONS, AS NEEDED, INALATION
     Dates: start: 20131201, end: 20140102

REACTIONS (8)
  - Product quality issue [None]
  - Drug ineffective [None]
  - Oxygen saturation decreased [None]
  - Wheezing [None]
  - Chronic obstructive pulmonary disease [None]
  - Dyspnoea [None]
  - Product substitution issue [None]
  - Expired product administered [None]

NARRATIVE: CASE EVENT DATE: 20131218
